FAERS Safety Report 12339051 (Version 1)
Quarter: 2016Q2

REPORT INFORMATION
  Report Type: Spontaneous
  Country: DK (occurrence: DK)
  Receive Date: 20160505
  Receipt Date: 20160505
  Transmission Date: 20160815
  Serious: Yes (Hospitalization)
  Sender: FDA-Public Use
  Company Number: PHHY2016DK058728

PATIENT
  Age: 54 Year
  Sex: Female

DRUGS (3)
  1. BETOLVEX//CYANOCOBALAMIN-TANNIN COMPLEX [Concomitant]
     Indication: VITAMIN SUPPLEMENTATION
     Route: 065
  2. BIOCLAVID [Suspect]
     Active Substance: AMOXICILLIN\CLAVULANIC ACID
     Indication: INFECTION
     Dosage: STRENGTH: 500 MG + 125 MG.
     Route: 048
     Dates: start: 20160201, end: 20160207
  3. ALENDRONAT TEVA [Concomitant]
     Indication: OSTEOPOROSIS
     Route: 065

REACTIONS (4)
  - Drug-induced liver injury [Recovering/Resolving]
  - Abdominal pain upper [Recovering/Resolving]
  - Faeces pale [Recovering/Resolving]
  - Chromaturia [Recovering/Resolving]

NARRATIVE: CASE EVENT DATE: 201602
